FAERS Safety Report 5580676-6 (Version None)
Quarter: 2008Q1

REPORT INFORMATION
  Report Type: 
  Country: None (occurrence: None)
  Receive Date: 20080103
  Receipt Date: 20071227
  Transmission Date: 20080703
  Serious: Yes (Other)
  Sender: FDA-Public Use
  Company Number: JP-PFIZER INC-2007103722

PATIENT
  Sex: Female

DRUGS (8)
  1. SILDENAFIL (PAH) [Suspect]
     Indication: PULMONARY HYPERTENSION
     Route: 048
     Dates: start: 20071012, end: 20071121
  2. TRACLEER [Suspect]
     Indication: PULMONARY HYPERTENSION
     Route: 048
  3. WARFARIN SODIUM [Concomitant]
     Route: 048
  4. FLOLAN [Concomitant]
     Route: 042
  5. PREDONINE [Concomitant]
     Route: 048
  6. SELBEX [Concomitant]
     Route: 048
  7. LOXONIN [Concomitant]
     Route: 048
  8. LENDORMIN [Concomitant]
     Route: 048

REACTIONS (5)
  - ALANINE AMINOTRANSFERASE INCREASED [None]
  - ASPARTATE AMINOTRANSFERASE INCREASED [None]
  - BLOOD ALKALINE PHOSPHATASE INCREASED [None]
  - GAMMA-GLUTAMYLTRANSFERASE INCREASED [None]
  - HEPATIC FUNCTION ABNORMAL [None]
